FAERS Safety Report 5895058-7 (Version None)
Quarter: 2008Q3

REPORT INFORMATION
  Report Type: 
  Country: None (occurrence: None)
  Receive Date: 20080924
  Receipt Date: 20080922
  Transmission Date: 20090109
  Serious: Yes (Death)
  Sender: FDA-Public Use
  Company Number: GB-BRISTOL-MYERS SQUIBB COMPANY-14120521

PATIENT
  Age: 4 Decade
  Sex: Male

DRUGS (1)
  1. IRBESARTAN [Suspect]
     Dosage: PRESCRIBED DOSE:75 MG;PATIENT TOOK 1/2 TAB;EVENT OCCURED FOLLOWING INITIAL DOSE.
     Dates: start: 20070101

REACTIONS (3)
  - DEATH [None]
  - HYPERSENSITIVITY [None]
  - LEUKOCYTOSIS [None]
